FAERS Safety Report 6679680-6 (Version None)
Quarter: 2010Q2

REPORT INFORMATION
  Report Type: 
  Country: None (occurrence: None)
  Receive Date: 20100413
  Receipt Date: 20100407
  Transmission Date: 20101027
  Serious: Yes (Life-Threatening, Hospitalization)
  Sender: FDA-Public Use
  Company Number: B0647071A

PATIENT
  Age: 55 Year
  Sex: Female

DRUGS (1)
  1. ZINADOL [Suspect]
     Dosage: 250MG PER DAY
     Route: 048
     Dates: start: 20100325, end: 20100325

REACTIONS (5)
  - ASPHYXIA [None]
  - CIRCULATORY COLLAPSE [None]
  - HYPERSENSITIVITY [None]
  - RASH [None]
  - TONGUE OEDEMA [None]
